FAERS Safety Report 5042449-2 (Version None)
Quarter: 2006Q3

REPORT INFORMATION
  Report Type: 
  Country: None (occurrence: None)
  Receive Date: 20060705
  Receipt Date: 20060419
  Transmission Date: 20061208
  Serious: Yes (Other)
  Sender: FDA-Public Use
  Company Number: PHEH2006US05196

PATIENT
  Age: 71 Year
  Sex: Male

DRUGS (13)
  1. AREDIA [Suspect]
     Indication: MULTIPLE MYELOMA
     Dosage: 90 MG, UNK
     Dates: end: 20050101
  2. ZOMETA [Suspect]
     Indication: MULTIPLE MYELOMA
     Dates: start: 20050101, end: 20051001
  3. PLAVIX [Concomitant]
  4. TRICOR [Concomitant]
  5. VASOTEC [Concomitant]
  6. FORTAMET [Concomitant]
  7. LIPITOR [Concomitant]
  8. SYNTHROID [Concomitant]
  9. HYDROCHLOROTHIAZIDE [Concomitant]
  10. ASPIRIN [Concomitant]
  11. NEURONTIN [Concomitant]
  12. VICODIN [Concomitant]
  13. TESTOSTERONE [Concomitant]

REACTIONS (2)
  - ORAL SURGERY [None]
  - OSTEONECROSIS [None]
